FAERS Safety Report 10053057 (Version 2)
Quarter: 2014Q2

REPORT INFORMATION
  Report Type: Spontaneous
  Country: US (occurrence: US)
  Receive Date: 20140402
  Receipt Date: 20140414
  Transmission Date: 20141212
  Serious: Yes (Other)
  Sender: FDA-Public Use
  Company Number: CHPA2014US004669

PATIENT
  Age: 54 Year
  Sex: Male

DRUGS (8)
  1. 4 WAY FAST ACTING NASAL SPRAY [Suspect]
     Indication: SINUS CONGESTION
     Dosage: 1 SPRAY IN EACH NOSTRIL, 2-3 TIMES DAILY
     Route: 045
  2. 4 WAY FAST ACTING NASAL SPRAY [Suspect]
     Indication: HYPERSENSITIVITY
  3. 4 WAY MENTHOLATED NASAL SPRAY [Suspect]
     Indication: SINUS CONGESTION
     Dosage: 1 SPRAY IN EACH NOSTRIL, 2-3 TIMES A DAY
     Route: 045
  4. 4 WAY MENTHOLATED NASAL SPRAY [Suspect]
     Indication: HYPERSENSITIVITY
  5. GAS-X CHEWABLE TABLETS CHERRY CREME [Suspect]
     Indication: ABDOMINAL DISCOMFORT
     Dosage: UNK UNK, PRN
  6. GAS-X CHEWABLE TABLETS CHERRY CREME [Suspect]
     Indication: OFF LABEL USE
  7. AFRIN                              /00360001/ [Concomitant]
  8. NASACORT [Concomitant]

REACTIONS (7)
  - Arthritis [Not Recovered/Not Resolved]
  - Back pain [Not Recovered/Not Resolved]
  - Arthralgia [Not Recovered/Not Resolved]
  - Musculoskeletal pain [Not Recovered/Not Resolved]
  - Expired product administered [Unknown]
  - Wrong technique in drug usage process [Unknown]
  - Underdose [Unknown]
